FAERS Safety Report 4526021-6 (Version None)
Quarter: 2004Q4

REPORT INFORMATION
  Report Type: 
  Country: None (occurrence: None)
  Receive Date: 20041210
  Receipt Date: 20041129
  Transmission Date: 20050328
  Serious: Yes (Hospitalization)
  Sender: FDA-Public Use
  Company Number: 210766

PATIENT
  Age: 46 Year
  Sex: Male
  Weight: 117.9 kg

DRUGS (8)
  1. AVASTIN [Suspect]
     Indication: COLORECTAL CANCER METASTATIC
     Dosage: 5 MG/KG, Q2W INTRAVENOUS
     Route: 042
     Dates: start: 20040501
  2. FLUOROURACIL [Concomitant]
  3. LEUCOVORIN CALCIUM [Concomitant]
  4. LASIX [Concomitant]
  5. POTASSIUM (POTASSIUM NOS) [Concomitant]
  6. OXYCODONE HCL (OXYCODONE HYDROCHLORIDE) [Concomitant]
  7. COUMADIN [Concomitant]
  8. SERTRALINE HCL [Concomitant]

REACTIONS (2)
  - CONVULSION [None]
  - DRUG INTERACTION [None]
